FAERS Safety Report 9306821 (Version 3)
Quarter: 2013Q3

REPORT INFORMATION
  Report Type: Spontaneous
  Country: US (occurrence: None)
  Receive Date: 20130329
  Receipt Date: 20130815
  Transmission Date: 20140515
  Serious: Yes (Other)
  Sender: FDA-Public Use
  Company Number: ADR-2012-00543

PATIENT
  Sex: Female

DRUGS (2)
  1. LIORESAL INTRATHECAL [Suspect]
     Indication: CEREBRAL PALSY
     Dosage: FLEX DOSING
  2. LIORESAL INTRATHECAL [Suspect]
     Indication: MUSCLE SPASTICITY
     Dosage: FLEX DOSING

REACTIONS (10)
  - Implant site calcification [None]
  - Foreign body reaction [None]
  - Infection [None]
  - Unevaluable event [None]
  - Overdose [None]
  - Medical device site reaction [None]
  - Post procedural infection [None]
  - Device difficult to use [None]
  - Deformity [None]
  - Hypotonia [None]
